FAERS Safety Report 5008418-3 (Version None)
Quarter: 2006Q2

REPORT INFORMATION
  Report Type: 
  Country: None (occurrence: None)
  Receive Date: 20060523
  Receipt Date: 20060515
  Transmission Date: 20061013
  Serious: Yes (Disabling)
  Sender: FDA-Public Use
  Company Number: PHFR2006GB01721

PATIENT
  Age: 56 Year
  Sex: Female
  Weight: 40 kg

DRUGS (3)
  1. ZOMETA [Suspect]
     Indication: METASTASES TO BONE
     Dosage: 4 MG, QMO
     Route: 042
     Dates: start: 20020101, end: 20060301
  2. CALCICHEW D3 [Concomitant]
     Route: 048
  3. FULVESTRANT [Concomitant]
     Indication: BREAST CANCER
     Dosage: 250 MG/DAY
     Route: 030

REACTIONS (1)
  - OSTEONECROSIS [None]
